FAERS Safety Report 10993443 (Version 2)
Quarter: 2015Q2

REPORT INFORMATION
  Report Type: Spontaneous
  Country: BR (occurrence: BR)
  Receive Date: 20150407
  Receipt Date: 20150420
  Transmission Date: 20150821
  Serious: Yes (Hospitalization)
  Sender: FDA-Public Use
  Company Number: BR-ACCORD-029622

PATIENT
  Age: 55 Year
  Sex: Female
  Weight: 57.4 kg

DRUGS (2)
  1. GEMCITABINE/GEMCITABINE HYDROCHLORIDE [Suspect]
     Active Substance: GEMCITABINE\GEMCITABINE HYDROCHLORIDE
     Indication: PRODUCT USED FOR UNKNOWN INDICATION
     Route: 042
  2. PACLITAXEL ACCORD [Suspect]
     Active Substance: PACLITAXEL
     Indication: PHYLLODES TUMOUR
     Dosage: 6 MG/ML
     Dates: start: 20150320

REACTIONS (5)
  - Eyelid oedema [Unknown]
  - Periorbital haemorrhage [Unknown]
  - Conjunctival hyperaemia [Unknown]
  - Hospitalisation [Unknown]
  - Vision blurred [Unknown]

NARRATIVE: CASE EVENT DATE: 20150320
